FAERS Safety Report 12694837 (Version 2)
Quarter: 2016Q3

REPORT INFORMATION
  Report Type: Spontaneous
  Country: US (occurrence: US)
  Receive Date: 20160829
  Receipt Date: 20160922
  Transmission Date: 20161109
  Serious: No
  Sender: FDA-Public Use
  Company Number: US-TEVA-688678USA

PATIENT
  Sex: Female

DRUGS (1)
  1. MODAFINIL. [Suspect]
     Active Substance: MODAFINIL
     Dosage: 400 MILLIGRAM DAILY;
     Route: 048

REACTIONS (1)
  - Drug effect decreased [Unknown]
